FAERS Safety Report 9362512 (Version 1)
Quarter: 2013Q2

REPORT INFORMATION
  Report Type: Spontaneous
  Country: US (occurrence: US)
  Receive Date: 20130622
  Receipt Date: 20130622
  Transmission Date: 20140414
  Serious: No
  Sender: FDA-Public Use
  Company Number: US-US-EMD SERONO, INC.-7074433

PATIENT
  Sex: Female

DRUGS (1)
  1. REBIF [Suspect]
     Indication: MULTIPLE SCLEROSIS
     Route: 058
     Dates: start: 20091130

REACTIONS (5)
  - Blood blister [Recovered/Resolved]
  - Sensation of heaviness [Unknown]
  - Dry skin [Recovered/Resolved]
  - Onychoclasis [Unknown]
  - Injection site erythema [Recovering/Resolving]
